FAERS Safety Report 23437840 (Version 1)
Quarter: 2024Q1

REPORT INFORMATION
  Report Type: Spontaneous
  Country: ES (occurrence: ES)
  Receive Date: 20240124
  Receipt Date: 20240124
  Transmission Date: 20240409
  Serious: Yes (Other)
  Sender: FDA-Public Use
  Company Number: ES-EMA-DD-20231006-7222542-102625

PATIENT
  Age: 3 Year
  Sex: Male

DRUGS (2)
  1. METHOTREXATE [Suspect]
     Active Substance: METHOTREXATE
     Indication: Langerhans^ cell histiocytosis
     Dosage: UNK
     Route: 065
  2. MERCAPTOPURINE [Suspect]
     Active Substance: MERCAPTOPURINE
     Indication: Langerhans^ cell histiocytosis
     Dosage: UNK
     Route: 065

REACTIONS (7)
  - Febrile neutropenia [Recovered/Resolved]
  - Mycobacterial infection [Recovered/Resolved]
  - Protein-losing gastroenteropathy [Recovered/Resolved]
  - Mesenteritis [Recovered/Resolved]
  - Malabsorption [Recovered/Resolved]
  - Respiratory syncytial virus infection [Recovered/Resolved]
  - Norovirus test positive [Recovered/Resolved]
